FAERS Safety Report 8333663-9 (Version None)
Quarter: 2012Q2

REPORT INFORMATION
  Report Type: 
  Country: None (occurrence: None)
  Receive Date: 20120503
  Receipt Date: 20120427
  Transmission Date: 20120825
  Serious: Yes (Congenital Anomaly, Other)
  Sender: FDA-Public Use
  Company Number: GXKR2012DE001596

PATIENT

DRUGS (4)
  1. LORAZEPAM [Suspect]
     Dosage: MATERNAL DOSE: 1.0 [MG/D ]/ ONLY OCCASIONALLY, WHEN NEEDED; BUT THE NIGHT BEFORE DELIVERY
     Route: 064
  2. PROZAC [Concomitant]
     Dosage: MATERNAL DOSE: 15 [MG/D ]
     Route: 064
  3. TRAZODONE HCL [Suspect]
     Dosage: MATERNAL DOSE: 25 [MG/D ]
     Route: 064
  4. XYLOMETAZOLINE [Concomitant]
     Dosage: MATERNAL DOSE: 1X PER DAY, BEFORE GOING TO SLEEP
     Route: 064

REACTIONS (3)
  - HYPOSPADIAS [None]
  - NEONATAL RESPIRATORY DISTRESS SYNDROME [None]
  - FOETAL EXPOSURE DURING PREGNANCY [None]
